FAERS Safety Report 17775140 (Version 1)
Quarter: 2020Q2

REPORT INFORMATION
  Report Type: Spontaneous
  Country: US (occurrence: US)
  Receive Date: 20200512
  Receipt Date: 20200512
  Transmission Date: 20200714
  Serious: No
  Sender: FDA-Public Use
  Company Number: None

PATIENT
  Age: 60 Year
  Sex: Female
  Weight: 53.64 kg

DRUGS (16)
  1. IBRANCE [Suspect]
     Active Substance: PALBOCICLIB
     Indication: BREAST CANCER
     Route: 048
     Dates: start: 20200415
  2. LORAZEPAM. [Concomitant]
     Active Substance: LORAZEPAM
  3. ALLOPURINOL. [Concomitant]
     Active Substance: ALLOPURINOL
  4. ASPIRIN. [Concomitant]
     Active Substance: ASPIRIN
  5. MULTIVITAMINS [Concomitant]
     Active Substance: VITAMINS
  6. FISH OIL [Concomitant]
     Active Substance: FISH OIL
  7. TRAMADOL. [Concomitant]
     Active Substance: TRAMADOL
  8. VITAMIN D [Concomitant]
     Active Substance: VITAMIN D NOS
  9. OMEGA 3 [Concomitant]
     Active Substance: OMEGA-3 FATTY ACIDS
  10. GABAPENTIN. [Concomitant]
     Active Substance: GABAPENTIN
  11. TAMOXIFEN [Concomitant]
     Active Substance: TAMOXIFEN
  12. DICLOFENAC [Concomitant]
     Active Substance: DICLOFENAC
  13. LANTUS [Concomitant]
     Active Substance: INSULIN GLARGINE
  14. OMEPRAZOLE. [Concomitant]
     Active Substance: OMEPRAZOLE
  15. ATORVASTATIN [Concomitant]
     Active Substance: ATORVASTATIN
  16. OXYCODONE AND ACETAMINOPHEN [Concomitant]
     Active Substance: ACETAMINOPHEN\OXYCODONE HYDROCHLORIDE

REACTIONS (1)
  - Liver disorder [None]
